FAERS Safety Report 5917287-6 (Version None)
Quarter: 2008Q4

REPORT INFORMATION
  Report Type: 
  Country: None (occurrence: None)
  Receive Date: 20081014
  Receipt Date: 20081003
  Transmission Date: 20090506
  Serious: Yes (Hospitalization, Other)
  Sender: FDA-Public Use
  Company Number: US-ELI_LILLY_AND_COMPANY-US200806005482

PATIENT
  Sex: Female

DRUGS (2)
  1. FORTEO [Suspect]
     Dates: start: 20070101, end: 20070901
  2. FORTEO [Suspect]
     Dates: start: 20080701

REACTIONS (8)
  - AUTOIMMUNE DISORDER [None]
  - HEPATIC NEOPLASM [None]
  - HYPOTENSION [None]
  - LOSS OF CONSCIOUSNESS [None]
  - PNEUMONIA [None]
  - PYREXIA [None]
  - SJOGREN'S SYNDROME [None]
  - URINARY TRACT INFECTION [None]
